FAERS Safety Report 17206533 (Version 1)
Quarter: 2019Q4

REPORT INFORMATION
  Report Type: Spontaneous
  Country: FR (occurrence: FR)
  Receive Date: 20191227
  Receipt Date: 20191227
  Transmission Date: 20200122
  Serious: Yes (Death)
  Sender: FDA-Public Use
  Company Number: FR-TEVA-2019-FR-1157512

PATIENT
  Age: 84 Year
  Sex: Male
  Weight: 69.6 kg

DRUGS (9)
  1. VITAMINE A [Concomitant]
     Active Substance: RETINOL
  2. NAFTIDROFURYL [Concomitant]
     Active Substance: NAFRONYL
  3. CLOPIDOGREL (BESILATE DE) [Suspect]
     Active Substance: CLOPIDOGREL BESILATE
     Indication: PERIPHERAL ARTERIAL OCCLUSIVE DISEASE
     Dosage: 75 MG
     Route: 048
     Dates: start: 201801, end: 20191115
  4. MONOPROST [Concomitant]
     Active Substance: LATANOPROST
  5. LANSOPRAZOLE. [Concomitant]
     Active Substance: LANSOPRAZOLE
  6. ELIQUIS [Suspect]
     Active Substance: APIXABAN
     Indication: PERIPHERAL ARTERIAL OCCLUSIVE DISEASE
     Dosage: 5 MG
     Route: 048
     Dates: start: 201801, end: 20191115
  7. PENTASA [Concomitant]
     Active Substance: MESALAMINE
  8. BISOPROLOL (HEMIFUMARATE DE) [Concomitant]
     Active Substance: BISOPROLOL FUMARATE
  9. LEVOTHYROX [Concomitant]
     Active Substance: LEVOTHYROXINE

REACTIONS (1)
  - Subdural haematoma [Fatal]

NARRATIVE: CASE EVENT DATE: 20191113
